FAERS Safety Report 16309125 (Version 1)
Quarter: 2019Q2

REPORT INFORMATION
  Report Type: Spontaneous
  Country: US (occurrence: US)
  Receive Date: 20190514
  Receipt Date: 20190514
  Transmission Date: 20190711
  Serious: No
  Sender: FDA-Public Use
  Company Number: US-BAYER-2019-095147

PATIENT
  Age: 53 Year
  Sex: Female
  Weight: 79 kg

DRUGS (1)
  1. MIRALAX [Suspect]
     Active Substance: POLYETHYLENE GLYCOL 3350
     Indication: PROPHYLAXIS
     Dosage: , 1/2 DOSE DAILY, 1/2 TABLESPOON DAILY UNK
     Route: 048
     Dates: start: 201901

REACTIONS (3)
  - Off label use [Unknown]
  - Product odour abnormal [None]
  - Product use in unapproved indication [Unknown]

NARRATIVE: CASE EVENT DATE: 201901
